FAERS Safety Report 11246629 (Version 2)
Quarter: 2015Q3

REPORT INFORMATION
  Report Type: Spontaneous
  Country: PT (occurrence: PT)
  Receive Date: 20150708
  Receipt Date: 20150910
  Transmission Date: 20151125
  Serious: Yes (Other)
  Sender: FDA-Public Use
  Company Number: PT-ACTAVIS-2015-14012

PATIENT
  Age: 77 Year
  Sex: Female

DRUGS (3)
  1. DOCETAXEL ACTAVIS [Suspect]
     Active Substance: DOCETAXEL
     Indication: BREAST CANCER
     Dosage: 75 MG/M2, 1/ THREE WEEKS (2ND CYCLE OF ADMINISTRATION)
     Route: 042
     Dates: start: 20150605, end: 20150605
  2. ONDANSETROM                        /00955301/ [Concomitant]
     Indication: ALLERGY PROPHYLAXIS
     Dosage: 8 MG, DAILY (PREMEDICATION SCHEME)
     Route: 042
     Dates: start: 20150605, end: 20150605
  3. DEXAMETASONA                       /00016001/ [Concomitant]
     Indication: ALLERGY PROPHYLAXIS
     Dosage: 20 MG, DAILY (PREMEDICATION SCHEME)
     Route: 042
     Dates: start: 20150605, end: 20150605

REACTIONS (5)
  - Injection site vesicles [Recovered/Resolved]
  - Injection site exfoliation [Unknown]
  - Skin lesion [Unknown]
  - Injection site pruritus [Recovered/Resolved]
  - Injection site erythema [Unknown]

NARRATIVE: CASE EVENT DATE: 201506
